FAERS Safety Report 4445410-1 (Version None)
Quarter: 2004Q3

REPORT INFORMATION
  Report Type: 
  Country: None (occurrence: None)
  Receive Date: 20040730
  Receipt Date: 20030711
  Transmission Date: 20050211
  Serious: Yes (Other)
  Sender: FDA-Public Use
  Company Number: 2003-07-1036

PATIENT
  Sex: Female

DRUGS (1)
  1. INTRON A [Suspect]
     Dosage: SUBCUTANEOUS
     Route: 058

REACTIONS (6)
  - COMA [None]
  - CONFUSIONAL STATE [None]
  - HALLUCINATION, VISUAL [None]
  - MEMORY IMPAIRMENT [None]
  - OVERDOSE [None]
  - RED BLOOD CELL COUNT INCREASED [None]
